FAERS Safety Report 11914227 (Version 1)
Quarter: 2016Q1

REPORT INFORMATION
  Report Type: Spontaneous
  Country: FR (occurrence: FR)
  Receive Date: 20160113
  Receipt Date: 20160113
  Transmission Date: 20160526
  Serious: Yes (Other)
  Sender: FDA-Public Use
  Company Number: FR-BRISTOL-MYERS SQUIBB COMPANY-12001715

PATIENT
  Sex: Male

DRUGS (4)
  1. ZIAGEN [Suspect]
     Active Substance: ABACAVIR SULFATE
     Indication: PRODUCT USED FOR UNKNOWN INDICATION
     Route: 050
  2. CRIXIVAN [Suspect]
     Active Substance: INDINAVIR SULFATE
     Indication: PRODUCT USED FOR UNKNOWN INDICATION
     Route: 050
  3. NORVIR [Suspect]
     Active Substance: RITONAVIR
     Indication: PRODUCT USED FOR UNKNOWN INDICATION
     Route: 050
  4. ZERIT [Suspect]
     Active Substance: STAVUDINE
     Indication: PRODUCT USED FOR UNKNOWN INDICATION
     Dosage: UNK
     Route: 050

REACTIONS (3)
  - Foetal growth restriction [Unknown]
  - Exposure via father [Unknown]
  - Premature baby [Unknown]
